FAERS Safety Report 7325219-1 (Version None)
Quarter: 2011Q1

REPORT INFORMATION
  Report Type: 
  Country: None (occurrence: None)
  Receive Date: 20110302
  Receipt Date: 20110224
  Transmission Date: 20110831
  Serious: No
  Sender: FDA-Public Use
  Company Number: US-PFIZER INC-2011040205

PATIENT
  Sex: Female
  Weight: 63.5 kg

DRUGS (4)
  1. MULTI-VITAMINS [Concomitant]
     Dosage: UNK
  2. PRISTIQ [Suspect]
     Indication: DEPRESSION
     Dosage: 50 MG, 2X/DAY
     Route: 048
     Dates: start: 20110223
  3. OXYBUTYNIN [Concomitant]
     Dosage: UNK
  4. PRISTIQ [Suspect]
     Dosage: 50MG DAILY
     Route: 048
     Dates: start: 20080101

REACTIONS (3)
  - DRUG INEFFECTIVE [None]
  - FATIGUE [None]
  - SOMNOLENCE [None]
